FAERS Safety Report 6617417-7 (Version None)
Quarter: 2010Q1

REPORT INFORMATION
  Report Type: 
  Country: None (occurrence: None)
  Receive Date: 20100308
  Receipt Date: 20100217
  Transmission Date: 20100710
  Serious: Yes (Other)
  Sender: FDA-Public Use
  Company Number: US-BAYER-201015540NA

PATIENT
  Age: 25 Year
  Sex: Female

DRUGS (2)
  1. MIRENA [Suspect]
     Indication: CONTRACEPTION
     Route: 015
     Dates: start: 20100217, end: 20100217
  2. MIRENA [Suspect]
     Route: 015
     Dates: start: 20100217, end: 20100217

REACTIONS (3)
  - DEVICE EXPULSION [None]
  - LOSS OF CONSCIOUSNESS [None]
  - SYNCOPE [None]
